FAERS Safety Report 25663702 (Version 1)
Quarter: 2025Q3

REPORT INFORMATION
  Report Type: Spontaneous
  Country: EU (occurrence: EU)
  Receive Date: 20250811
  Receipt Date: 20250811
  Transmission Date: 20251021
  Serious: Yes (Hospitalization, Other)
  Sender: SANOFI AVENTIS
  Company Number: EU-DialogSolutions-SAAVPROD-PI807602-C1

PATIENT
  Age: 63 Year
  Sex: Female

DRUGS (7)
  1. GLIMEPIRIDE [Suspect]
     Active Substance: GLIMEPIRIDE
  2. METFORMIN HYDROCHLORIDE [Suspect]
     Active Substance: METFORMIN HYDROCHLORIDE
  3. PERINDOPRIL [Suspect]
     Active Substance: PERINDOPRIL
  4. INDAPAMIDE [Suspect]
     Active Substance: INDAPAMIDE
  5. CANAGLIFLOZIN [Suspect]
     Active Substance: CANAGLIFLOZIN
  6. DABIGATRAN [Suspect]
     Active Substance: DABIGATRAN
  7. CEFOTAXIME [Concomitant]
     Active Substance: CEFOTAXIME SODIUM
     Indication: Urosepsis

REACTIONS (7)
  - Gastrointestinal haemorrhage [Recovering/Resolving]
  - Hypotension [Recovering/Resolving]
  - Epistaxis [Recovering/Resolving]
  - Haematuria [Recovering/Resolving]
  - Vascular access site haemorrhage [Recovering/Resolving]
  - Coagulopathy [Recovering/Resolving]
  - Hypoglycaemia [Recovering/Resolving]
